FAERS Safety Report 17537710 (Version 2)
Quarter: 2020Q1

REPORT INFORMATION
  Report Type: Spontaneous
  Country: RO (occurrence: RO)
  Receive Date: 20200313
  Receipt Date: 20200317
  Transmission Date: 20200409
  Serious: Yes (Other)
  Sender: FDA-Public Use
  Company Number: RO-PFIZER INC-2020108464

PATIENT
  Sex: Male
  Weight: 3.3 kg

DRUGS (9)
  1. OSETRON [Suspect]
     Active Substance: ONDANSETRON HYDROCHLORIDE
     Dosage: UNK
     Route: 064
     Dates: start: 201612
  2. NO SPA [Suspect]
     Active Substance: DROTAVERINE HYDROCHLORIDE
     Dosage: UNK UNK, 3X/DAY
     Route: 064
     Dates: start: 201611, end: 201703
  3. OXYTOCIN. [Concomitant]
     Active Substance: OXYTOCIN
     Dosage: UNK
  4. CALCIUM GLUCONATE. [Concomitant]
     Active Substance: CALCIUM GLUCONATE
     Dosage: UNK
  5. EUTHYROX [Suspect]
     Active Substance: LEVOTHYROXINE SODIUM
     Dosage: 1.5 DF, 1X/DAY
     Route: 064
     Dates: start: 2004
  6. NO SPA [Suspect]
     Active Substance: DROTAVERINE HYDROCHLORIDE
     Dosage: 40 MILLIGRAM VIAL
     Route: 064
     Dates: start: 201612
  7. FOLIC ACID. [Suspect]
     Active Substance: FOLIC ACID
     Dosage: 1 DF, 1X/DAY
     Route: 064
     Dates: start: 20160720, end: 201703
  8. CONTROLOC [Suspect]
     Active Substance: PANTOPRAZOLE SODIUM
     Dosage: UNK
     Route: 064
     Dates: start: 201612
  9. ASPENTER [Suspect]
     Active Substance: ASPIRIN
     Dosage: 1 DF, 1X/DAY
     Route: 064
     Dates: start: 201609, end: 201703

REACTIONS (6)
  - Foetal exposure during pregnancy [Unknown]
  - Wheezing [Unknown]
  - Dairy intolerance [Unknown]
  - Gastrooesophageal reflux disease [Unknown]
  - Neonatal respiratory distress [Unknown]
  - Bronchiolitis [Unknown]
